FAERS Safety Report 24250888 (Version 1)
Quarter: 2024Q3

REPORT INFORMATION
  Report Type: Spontaneous
  Country: US (occurrence: None)
  Receive Date: 20240825
  Receipt Date: 20240825
  Transmission Date: 20241017
  Serious: Yes (Other)
  Sender: Public
  Company Number: None

PATIENT
  Age: 32 Year
  Sex: Female
  Weight: 94.5 kg

DRUGS (3)
  1. OZEMPIC [Suspect]
     Active Substance: SEMAGLUTIDE
     Indication: Insulin resistance
     Dates: start: 20230601, end: 20240704
  2. OZEMPIC [Suspect]
     Active Substance: SEMAGLUTIDE
     Indication: Anxiety
  3. ALPRAZOLAM [Concomitant]
     Active Substance: ALPRAZOLAM

REACTIONS (8)
  - Anxiety [None]
  - Panic attack [None]
  - Nausea [None]
  - Diarrhoea [None]
  - Impaired work ability [None]
  - Economic problem [None]
  - Suicidal ideation [None]
  - Loss of personal independence in daily activities [None]

NARRATIVE: CASE EVENT DATE: 20240701
